FAERS Safety Report 8354565-8 (Version None)
Quarter: 2012Q2

REPORT INFORMATION
  Report Type: 
  Country: None (occurrence: None)
  Receive Date: 20120511
  Receipt Date: 20110411
  Transmission Date: 20120825
  Serious: No
  Sender: FDA-Public Use
  Company Number: US-TEVA-2011000872

PATIENT
  Sex: Female
  Weight: 63.56 kg

DRUGS (7)
  1. CYMBALTA [Concomitant]
     Dates: start: 20080101
  2. NUVIGIL [Suspect]
     Indication: SLEEP APNOEA SYNDROME
     Dosage: 150 MILLIGRAM;
     Route: 048
     Dates: start: 20110205, end: 20110205
  3. GAS-X [Concomitant]
     Dates: start: 20090101
  4. HYDROCODONE W/ACETOMINOPHEN [Concomitant]
     Dates: start: 20100101
  5. NUVIGIL [Suspect]
     Dosage: 75 MILLIGRAM;
     Route: 048
     Dates: start: 20110206, end: 20110222
  6. NOVOLOG [Concomitant]
     Dates: start: 19600101
  7. ALPRAZOLAM [Concomitant]
     Dates: start: 20100101

REACTIONS (3)
  - FEELING ABNORMAL [None]
  - NAUSEA [None]
  - DRUG INEFFECTIVE [None]
